FAERS Safety Report 7306428-4 (Version None)
Quarter: 2011Q1

REPORT INFORMATION
  Report Type: 
  Country: None (occurrence: None)
  Receive Date: 20110222
  Receipt Date: 20110215
  Transmission Date: 20110831
  Serious: Yes (Hospitalization, Other)
  Sender: FDA-Public Use
  Company Number: US-ABBOTT-11P-163-0705964-00

PATIENT
  Age: 52 Year
  Sex: Female

DRUGS (6)
  1. AMITIZA [Concomitant]
     Indication: CONSTIPATION
  2. VITAMIN B-12 [Concomitant]
     Indication: ARTHRALGIA
  3. VITAMIN B-12 [Concomitant]
     Indication: MYALGIA
  4. HUMIRA [Suspect]
     Indication: CROHN'S DISEASE
     Dates: start: 20101104
  5. PRILOSEC [Concomitant]
     Indication: GASTROOESOPHAGEAL REFLUX DISEASE
  6. NASACORT [Concomitant]
     Indication: HYPERSENSITIVITY

REACTIONS (9)
  - NEPHROLITHIASIS [None]
  - OEDEMA PERIPHERAL [None]
  - PAIN IN EXTREMITY [None]
  - RENAL IMPAIRMENT [None]
  - BACK PAIN [None]
  - MUSCULOSKELETAL PAIN [None]
  - FLANK PAIN [None]
  - ARTHRALGIA [None]
  - MYALGIA [None]
